FAERS Safety Report 7380098-1 (Version None)
Quarter: 2011Q1

REPORT INFORMATION
  Report Type: 
  Country: None (occurrence: None)
  Receive Date: 20110329
  Receipt Date: 20100309
  Transmission Date: 20110831
  Serious: No
  Sender: FDA-Public Use
  Company Number: US-MYLANLABS-2010S1004137

PATIENT
  Age: 61 Year
  Sex: Female

DRUGS (3)
  1. ESTRADIOL [Suspect]
     Dosage: CHANGED QW
     Route: 062
     Dates: start: 20100201
  2. ALLEGRA [Concomitant]
  3. ESTRADIOL [Suspect]
     Indication: HORMONE REPLACEMENT THERAPY
     Dosage: CHANGED QW
     Route: 062
     Dates: start: 20100201, end: 20100201

REACTIONS (6)
  - ALOPECIA [None]
  - PAIN IN EXTREMITY [None]
  - MUSCLE SPASMS [None]
  - ASTHENIA [None]
  - BLEPHAROSPASM [None]
  - DIZZINESS [None]
